FAERS Safety Report 10263587 (Version 1)
Quarter: 2014Q2

REPORT INFORMATION
  Report Type: Report from Study
  Country: AR (occurrence: AR)
  Receive Date: 20140626
  Receipt Date: 20140626
  Transmission Date: 20141212
  Serious: Yes (Other)
  Sender: FDA-Public Use
  Company Number: AR-ABBVIE-14P-007-1249987-00

PATIENT
  Age: 44 Year
  Sex: Female

DRUGS (6)
  1. HUMIRA [Suspect]
     Indication: PSORIATIC ARTHROPATHY
     Route: 058
     Dates: start: 20131022
  2. HUMIRA [Suspect]
     Route: 058
  3. PAROXETINE [Concomitant]
     Indication: DEPRESSION
     Route: 048
  4. PROMETHAZINE [Concomitant]
     Indication: PRODUCT USED FOR UNKNOWN INDICATION
     Route: 048
  5. CLONAZEPAM [Concomitant]
     Indication: PRODUCT USED FOR UNKNOWN INDICATION
     Route: 048
  6. ALPRAZOLAM [Concomitant]
     Indication: PRODUCT USED FOR UNKNOWN INDICATION
     Route: 048

REACTIONS (5)
  - Depression suicidal [Recovering/Resolving]
  - Bipolar disorder [Recovering/Resolving]
  - Disturbance in attention [Recovering/Resolving]
  - Disorientation [Recovering/Resolving]
  - Stress [Recovering/Resolving]
